FAERS Safety Report 18867308 (Version 1)
Quarter: 2021Q1

REPORT INFORMATION
  Report Type: Spontaneous
  Country: US (occurrence: US)
  Receive Date: 20210209
  Receipt Date: 20210209
  Transmission Date: 20210420
  Serious: Yes (Disabling)
  Sender: FDA-Public Use
  Company Number: None

PATIENT
  Age: 57 Year
  Sex: Female
  Weight: 72 kg

DRUGS (1)
  1. CLOTRIMAZOLE TROCHE [Suspect]
     Active Substance: CLOTRIMAZOLE
     Indication: ORAL CANDIDIASIS
     Dosage: ?          QUANTITY:1 TABLET(S);OTHER FREQUENCY:5X A DAY;?
     Route: 048
     Dates: start: 20201221, end: 20201227

REACTIONS (7)
  - Pruritus [None]
  - Swelling face [None]
  - Hypophagia [None]
  - Swollen tongue [None]
  - Gastroenteritis viral [None]
  - Vomiting [None]
  - Food intolerance [None]

NARRATIVE: CASE EVENT DATE: 20201221
